FAERS Safety Report 5582279-6 (Version None)
Quarter: 2008Q1

REPORT INFORMATION
  Report Type: 
  Country: None (occurrence: None)
  Receive Date: 20080104
  Receipt Date: 20071226
  Transmission Date: 20080703
  Serious: Yes (Death, Hospitalization)
  Sender: FDA-Public Use
  Company Number: US-MERCK-0712USA09234

PATIENT
  Age: 66 Year
  Sex: Male

DRUGS (7)
  1. SIMVASTATIN [Suspect]
     Indication: HYPERLIPIDAEMIA
     Route: 048
  2. SIMVASTATIN [Suspect]
     Route: 048
  3. COLCHICINE [Suspect]
     Indication: GOUT
     Route: 065
  4. MYCOPHENOLATE SODIUM [Concomitant]
     Indication: GOUT
     Route: 065
  5. PREDNISONE [Suspect]
     Route: 065
  6. CYCLOSPORINE [Suspect]
     Route: 065
  7. INSULIN [Concomitant]
     Indication: DIABETES MELLITUS
     Route: 065

REACTIONS (2)
  - PNEUMONIA [None]
  - RHABDOMYOLYSIS [None]
